FAERS Safety Report 24028772 (Version 1)
Quarter: 2024Q2

REPORT INFORMATION
  Report Type: Report from Study
  Country: GB (occurrence: GB)
  Receive Date: 20240628
  Receipt Date: 20240628
  Transmission Date: 20240716
  Serious: Yes (Other)
  Sender: FDA-Public Use
  Company Number: GB-Accord-432146

PATIENT
  Age: 10 Day

DRUGS (3)
  1. CARBOPLATIN [Suspect]
     Active Substance: CARBOPLATIN
     Indication: Retinoblastoma
     Dosage: FIRST THREE CYCLES (320 MG/M2), VS. 515 MG/M2 FOR THE FINAL THREE CYCLES
  2. ETOPOSIDE [Concomitant]
     Active Substance: ETOPOSIDE
     Indication: Retinoblastoma
  3. VINCRISTINE [Concomitant]
     Active Substance: VINCRISTINE
     Indication: Retinoblastoma

REACTIONS (2)
  - Haematotoxicity [Unknown]
  - Off label use [Unknown]
